FAERS Safety Report 6833330-4 (Version None)
Quarter: 2010Q3

REPORT INFORMATION
  Report Type: 
  Country: None (occurrence: None)
  Receive Date: 20100712
  Receipt Date: 20100630
  Transmission Date: 20110219
  Serious: Yes (Other)
  Sender: FDA-Public Use
  Company Number: PHHY2010JP43256

PATIENT
  Age: 23 Year
  Sex: Male

DRUGS (7)
  1. CICLOSPORIN [Suspect]
     Indication: BONE MARROW TRANSPLANT
     Route: 048
  2. CICLOSPORIN [Suspect]
     Indication: PROPHYLAXIS AGAINST GRAFT VERSUS HOST DISEASE
  3. ANTI-THYMOCYTE GLOBULIN NOS [Suspect]
     Indication: BONE MARROW TRANSPLANT
     Dosage: 2.5 MG/KG/DAY, DAY 4 TO 1
  4. METHOTREXATE [Suspect]
     Indication: BONE MARROW TRANSPLANT
     Dosage: 10,7 AND 7MG/M2 ON 1,3, 6 DAY
  5. METHOTREXATE [Suspect]
     Indication: PROPHYLAXIS AGAINST GRAFT VERSUS HOST DISEASE
  6. CYCLOPHOSPHAMIDE [Concomitant]
     Indication: BONE MARROW TRANSPLANT
     Dosage: 60MG/M2/DAY , DAY 6 TO 5
  7. FLUDARABINE PHOSPHATE [Concomitant]
     Dosage: 30MG/M2/DAY, DAY 10 TO 5

REACTIONS (5)
  - EPSTEIN-BARR VIRUS ASSOCIATED LYMPHOPROLIFERATIVE DISORDER [None]
  - LIVER FUNCTION TEST ABNORMAL [None]
  - PANCYTOPENIA [None]
  - PYREXIA [None]
  - SPLENOMEGALY [None]
